FAERS Safety Report 23973648 (Version 2)
Quarter: 2025Q1

REPORT INFORMATION
  Report Type: Spontaneous
  Country: US (occurrence: None)
  Receive Date: 20240613
  Receipt Date: 20250123
  Transmission Date: 20250409
  Serious: Yes (Hospitalization, Disabling)
  Sender: MDD OPERATIONS
  Company Number: US-MDD US Operations-MDD202402-000457

PATIENT
  Age: 62 Year
  Sex: Female

DRUGS (2)
  1. APOKYN [Suspect]
     Active Substance: APOMORPHINE HYDROCHLORIDE
     Indication: Parkinson^s disease
     Dates: start: 20240125
  2. APOKYN [Suspect]
     Active Substance: APOMORPHINE HYDROCHLORIDE
     Route: 058

REACTIONS (10)
  - Movement disorder [Unknown]
  - Neuralgia [Not Recovered/Not Resolved]
  - Dysphagia [Recovered/Resolved]
  - Nausea [Unknown]
  - Dizziness [Unknown]
  - Somnolence [Unknown]
  - Rhinorrhoea [Unknown]
  - Yawning [Unknown]
  - Fatigue [Unknown]
  - Product dose omission issue [Unknown]

NARRATIVE: CASE EVENT DATE: 20240101
